FAERS Safety Report 13107435 (Version 1)
Quarter: 2017Q1

REPORT INFORMATION
  Report Type: Spontaneous
  Country: FR (occurrence: FR)
  Receive Date: 20170112
  Receipt Date: 20170112
  Transmission Date: 20170428
  Serious: Yes (Hospitalization)
  Sender: FDA-Public Use
  Company Number: FR-CONCORDIA PHARMACEUTICALS INC.-GSH201701-000051

PATIENT
  Age: 55 Year
  Sex: Female

DRUGS (13)
  1. METOJECT [Suspect]
     Active Substance: METHOTREXATE SODIUM
     Indication: POLYMYALGIA RHEUMATICA
     Route: 058
     Dates: start: 20150626, end: 201611
  2. EFFEXOR LP [Concomitant]
     Active Substance: VENLAFAXINE HYDROCHLORIDE
  3. CORTANCYL [Concomitant]
     Active Substance: PREDNISONE
     Indication: POLYMYALGIA RHEUMATICA
  4. PLAQUENIL [Suspect]
     Active Substance: HYDROXYCHLOROQUINE SULFATE
     Indication: POLYMYALGIA RHEUMATICA
     Route: 048
     Dates: start: 20150403, end: 201611
  5. XANAX [Concomitant]
     Active Substance: ALPRAZOLAM
  6. HYZAAR [Concomitant]
     Active Substance: HYDROCHLOROTHIAZIDE\LOSARTAN POTASSIUM
  7. INEXIUM [Concomitant]
     Active Substance: ESOMEPRAZOLE
  8. ROACTEMRA [Suspect]
     Active Substance: TOCILIZUMAB
     Indication: POLYMYALGIA RHEUMATICA
     Route: 058
     Dates: start: 20160129, end: 20161126
  9. SPECIAFOLDINE [Concomitant]
     Active Substance: FOLIC ACID
  10. LEVOTHYROX [Concomitant]
     Active Substance: LEVOTHYROXINE
  11. PLAQUENIL [Suspect]
     Active Substance: HYDROXYCHLOROQUINE SULFATE
     Route: 048
     Dates: start: 201612
  12. PARACETAMOL [Concomitant]
     Active Substance: ACETAMINOPHEN
  13. DEBRIDAT [Concomitant]
     Active Substance: TRIMEBUTINE MALEATE
     Dates: start: 2016

REACTIONS (2)
  - Diverticular perforation [Recovered/Resolved]
  - Peritonitis [Recovered/Resolved]

NARRATIVE: CASE EVENT DATE: 20161113
